APPROVED DRUG PRODUCT: BUTORPHANOL TARTRATE PRESERVATIVE FREE
Active Ingredient: BUTORPHANOL TARTRATE
Strength: 2MG/ML
Dosage Form/Route: INJECTABLE;INJECTION
Application: A075695 | Product #002
Applicant: BAXTER HEALTHCARE CORP
Approved: Oct 23, 2001 | RLD: No | RS: No | Type: DISCN